FAERS Safety Report 24822562 (Version 3)
Quarter: 2025Q2

REPORT INFORMATION
  Report Type: Spontaneous
  Country: AR (occurrence: AR)
  Receive Date: 20250109
  Receipt Date: 20250522
  Transmission Date: 20250717
  Serious: No
  Sender: JOHNSON AND JOHNSON
  Company Number: AR-JNJFOC-20241256538

PATIENT
  Age: 63 Year
  Sex: Female
  Weight: 59 kg

DRUGS (1)
  1. SIMPONI [Suspect]
     Active Substance: GOLIMUMAB
     Indication: Rheumatoid arthritis
     Dosage: STRENGTH:50.00 MG / 0.50 ML
     Route: 058
     Dates: start: 202402

REACTIONS (2)
  - Device deployment issue [Unknown]
  - Product dose omission issue [Unknown]

NARRATIVE: CASE EVENT DATE: 20241113
